FAERS Safety Report 8586886-8 (Version None)
Quarter: 2012Q3

REPORT INFORMATION
  Report Type: 
  Country: None (occurrence: None)
  Receive Date: 20120810
  Receipt Date: 20120806
  Transmission Date: 20120928
  Serious: Yes (Other)
  Sender: FDA-Public Use
  Company Number: CA-ELI_LILLY_AND_COMPANY-CA201208002382

PATIENT
  Age: 25 Year
  Sex: Male

DRUGS (8)
  1. CALCIUM [Concomitant]
  2. DEFLAZACORT [Concomitant]
  3. METOPROLOL TARTRATE [Concomitant]
  4. LISINOPRIL [Concomitant]
  5. FORTEO [Suspect]
     Indication: OSTEOPOROSIS
     Dosage: 20 UG, QD
     Route: 058
     Dates: start: 20120405
  6. ANDROGEL [Concomitant]
  7. VITAMIN D [Concomitant]
  8. CITALOPRAM HYDROBROMIDE [Concomitant]

REACTIONS (1)
  - WEIGHT INCREASED [None]
